FAERS Safety Report 11405419 (Version 1)
Quarter: 2015Q3

REPORT INFORMATION
  Report Type: Spontaneous
  Country: CN (occurrence: CN)
  Receive Date: 20150821
  Receipt Date: 20150821
  Transmission Date: 20151125
  Serious: Yes (Hospitalization)
  Sender: FDA-Public Use
  Company Number: CN-BRISTOL-MYERS SQUIBB COMPANY-BMS-2015-054127

PATIENT
  Age: 60 Year
  Sex: Female
  Weight: 80 kg

DRUGS (2)
  1. DIAMICRON [Suspect]
     Active Substance: GLICLAZIDE
     Indication: DIABETES MELLITUS
     Dosage: 30 MG, QID
     Route: 048
     Dates: start: 20140115, end: 20150128
  2. METFORMIN HYDROCHLORIDE. [Suspect]
     Active Substance: METFORMIN HYDROCHLORIDE
     Indication: TYPE 2 DIABETES MELLITUS
     Dosage: 0.5 G, QID
     Route: 048
     Dates: start: 20140515, end: 20150121

REACTIONS (7)
  - Nausea [Unknown]
  - Vomiting [Unknown]
  - Chest discomfort [Unknown]
  - Hepatic function abnormal [Recovered/Resolved]
  - Blood glucose abnormal [Recovering/Resolving]
  - Cough [Unknown]
  - Tachypnoea [Unknown]

NARRATIVE: CASE EVENT DATE: 20140913
